FAERS Safety Report 14393812 (Version 1)
Quarter: 2018Q1

REPORT INFORMATION
  Report Type: Spontaneous
  Country: US (occurrence: US)
  Receive Date: 20180113
  Receipt Date: 20180113
  Transmission Date: 20180509
  Serious: Yes (Hospitalization)
  Sender: FDA-Public Use
  Company Number: None

PATIENT
  Age: 57 Year
  Sex: Female

DRUGS (14)
  1. SILDENAFIL 20MG TAB CAMBER [Suspect]
     Active Substance: SILDENAFIL
     Indication: PULMONARY ARTERIAL HYPERTENSION
     Route: 048
  2. POT CL [Concomitant]
  3. DIPHENHYDRAM [Concomitant]
  4. FLOVENT HFA [Concomitant]
     Active Substance: FLUTICASONE PROPIONATE
  5. BACLOFEN. [Concomitant]
     Active Substance: BACLOFEN
  6. PRAMIPEXOLE. [Concomitant]
     Active Substance: PRAMIPEXOLE
  7. TORSEMIDE. [Concomitant]
     Active Substance: TORSEMIDE
  8. ZOLPIDEM [Concomitant]
     Active Substance: ZOLPIDEM\ZOLPIDEM TARTRATE
  9. GABAPENTIN. [Concomitant]
     Active Substance: GABAPENTIN
  10. TRAZODONE [Concomitant]
     Active Substance: TRAZODONE HYDROCHLORIDE
  11. FOLIC ACID. [Concomitant]
     Active Substance: FOLIC ACID
  12. AMLODIPINE [Concomitant]
     Active Substance: AMLODIPINE BESYLATE
  13. METOLAZONE. [Concomitant]
     Active Substance: METOLAZONE
  14. PANTOPRAZOLE [Concomitant]
     Active Substance: PANTOPRAZOLE

REACTIONS (3)
  - Pulmonary arterial hypertension [None]
  - Drug dose omission [None]
  - Condition aggravated [None]

NARRATIVE: CASE EVENT DATE: 20180112
